FAERS Safety Report 17284890 (Version 1)
Quarter: 2020Q1

REPORT INFORMATION
  Report Type: Spontaneous
  Country: ZA (occurrence: ZA)
  Receive Date: 20200117
  Receipt Date: 20200117
  Transmission Date: 20200409
  Serious: Yes (Other)
  Sender: FDA-Public Use
  Company Number: NVSC2020ZA010392

PATIENT
  Sex: Male

DRUGS (1)
  1. TAREG [Suspect]
     Active Substance: VALSARTAN
     Indication: CARDIAC FAILURE
     Dosage: 80 MG
     Route: 065

REACTIONS (4)
  - Ejection fraction abnormal [Unknown]
  - Off label use [Unknown]
  - Cardiac failure [Unknown]
  - Bundle branch block left [Unknown]
